FAERS Safety Report 23623079 (Version 1)
Quarter: 2024Q1

REPORT INFORMATION
  Report Type: Spontaneous
  Country: PL (occurrence: PL)
  Receive Date: 20240312
  Receipt Date: 20240312
  Transmission Date: 20240410
  Serious: Yes (Hospitalization)
  Sender: FDA-Public Use
  Company Number: None

PATIENT
  Age: 74 Year
  Sex: Female
  Weight: 103 kg

DRUGS (13)
  1. JARDIANCE [Suspect]
     Active Substance: EMPAGLIFLOZIN
     Indication: Diabetes mellitus
     Route: 048
     Dates: start: 20230919, end: 20231121
  2. Kaldyum 600 MG [Concomitant]
     Indication: Product used for unknown indication
     Route: 048
  3. CANDEPRES 8 MG [Concomitant]
     Indication: Product used for unknown indication
     Dosage: IN THE MORNING, IN DAYS WITHOUT DIALYSIS; FREQUENCY TIME 1 DAY
     Route: 048
  4. TORSEMED 20 MG [Concomitant]
     Indication: Product used for unknown indication
     Dosage: THERAPY ONGOING, DOSAGE 40MG-40MG -0 ON DAYS WITHOUT DIALYSIS; FREQUENCY TIME 12 HOURS
     Route: 048
     Dates: start: 202309
  5. ACIDUM FOLICUM HASCO 5 MG [Concomitant]
     Indication: Product used for unknown indication
     Dosage: IN DAYS WITHOUT DIALYSIS; FREQUENCY TIME 1 DAY
     Route: 048
  6. Atoris 20 MG [Concomitant]
     Indication: Product used for unknown indication
     Route: 048
  7. LANTUS 100 U/ML [Concomitant]
     Indication: Product used for unknown indication
     Dosage: 20 UNITS AT 9PM
     Route: 058
  8. Clindamycin-MIP 600 MG [Concomitant]
     Indication: Product used for unknown indication
     Dates: start: 20231109, end: 20231114
  9. Augmentin 500 MG + 125 MG [Concomitant]
     Indication: Product used for unknown indication
     Dates: start: 20231102, end: 20231109
  10. Tardyferon 80 MG [Concomitant]
     Indication: Product used for unknown indication
     Route: 048
  11. Bisocard 2,5 MG [Concomitant]
     Indication: Product used for unknown indication
     Dosage: 1/2 TABLET IN THE MORNING
  12. Clexane 4.000 I. E. (40 MG)/0,4 ML [Concomitant]
     Indication: Product used for unknown indication
     Dosage: IN DAYS WITHOUT DIALYSIS; FREQUENCY TIME 1 DAY
     Route: 058
  13. Gensulin R ROZTW?R DO WSTRZYKIWA? 100 J.M./ML [Concomitant]
     Indication: Product used for unknown indication
     Dosage: 20UNITS BEFORE BREAKFAST, 14 UNITS BEFORE LUNCH, 16UNITS BEFORE DINNER
     Route: 058

REACTIONS (6)
  - Chills [Recovering/Resolving]
  - Pseudomonas infection [Recovering/Resolving]
  - Pyrexia [Recovering/Resolving]
  - Device related infection [Recovering/Resolving]
  - Blood creatinine abnormal [Recovering/Resolving]
  - Renal failure [Recovering/Resolving]

NARRATIVE: CASE EVENT DATE: 20231030
